FAERS Safety Report 5032509-4 (Version None)
Quarter: 2006Q2

REPORT INFORMATION
  Report Type: 
  Country: None (occurrence: None)
  Receive Date: 20060622
  Receipt Date: 20060118
  Transmission Date: 20061013
  Serious: Yes (Hospitalization)
  Sender: FDA-Public Use
  Company Number: US-BRISTOL-MYERS SQUIBB COMPANY-13253711

PATIENT
  Age: 73 Year
  Sex: Male

DRUGS (5)
  1. PRAVACHOL [Suspect]
     Indication: HYPERLIPIDAEMIA
     Dates: start: 20000807, end: 20060102
  2. ALLOPURINOL [Concomitant]
  3. METOPROLOL TARTRATE [Concomitant]
  4. COLCHICINE [Concomitant]
     Dosage: 0.6MG MONDAY AND FRIDAY
  5. TARKA [Concomitant]

REACTIONS (2)
  - RENAL FAILURE ACUTE [None]
  - RHABDOMYOMA [None]
